FAERS Safety Report 9473998 (Version 2)
Quarter: 2014Q1

REPORT INFORMATION
  Report Type: Spontaneous
  Country: IT (occurrence: None)
  Receive Date: 20130820
  Receipt Date: 20140127
  Transmission Date: 20141002
  Serious: Yes (Hospitalization)
  Sender: FDA-Public Use
  Company Number: 2012IT000811

PATIENT
  Age: 59 Year
  Sex: Female
  Weight: 63 kg

DRUGS (6)
  1. PONATINIB (AP24534) TABLET [Suspect]
     Indication: CHRONIC MYELOID LEUKAEMIA
     Route: 048
     Dates: start: 20110629, end: 20120723
  2. NOVORAPID (INSULIN ASPART) [Concomitant]
  3. LANTUS (INSULIN GLARGINE) [Concomitant]
  4. ASPIRINETTA (ACETYLSALICYLIC ACID) [Concomitant]
  5. OMEPRAZOLE [Concomitant]
  6. METFORMIN (METFORMIN HYDROCHLORIDE) [Concomitant]

REACTIONS (4)
  - Peripheral arterial occlusive disease [None]
  - Muscle spasms [None]
  - Peripheral artery stenosis [None]
  - Peripheral artery stenosis [None]
